FAERS Safety Report 4748763-X (Version None)
Quarter: 2005Q3

REPORT INFORMATION
  Report Type: 
  Country: None (occurrence: None)
  Receive Date: 20050812
  Receipt Date: 20050615
  Transmission Date: 20060218
  Serious: Yes (Other)
  Sender: FDA-Public Use
  Company Number: 408042

PATIENT
  Age: 47 Year
  Sex: Female

DRUGS (4)
  1. PEGASYS [Suspect]
     Indication: DRUG USE FOR UNKNOWN INDICATION
     Dosage: OTHER
     Route: 050
     Dates: start: 20050316, end: 20050614
  2. COPEGUS [Suspect]
     Indication: DRUG USE FOR UNKNOWN INDICATION
     Dosage: ORAL
     Route: 048
     Dates: start: 20050316, end: 20050614
  3. TRAZODONE HCL [Concomitant]
  4. SEROQUEL [Concomitant]

REACTIONS (3)
  - FATIGUE [None]
  - OVERDOSE [None]
  - SUICIDE ATTEMPT [None]
